FAERS Safety Report 23213096 (Version 1)
Quarter: 2023Q4

REPORT INFORMATION
  Report Type: Spontaneous
  Country: None (occurrence: FR)
  Receive Date: 20231121
  Receipt Date: 20231121
  Transmission Date: 20240110
  Serious: Yes (Hospitalization)
  Sender: FDA-Public Use
  Company Number: FR-Ascend Therapeutics US, LLC-2148541

PATIENT
  Age: 42 Year
  Sex: Male

DRUGS (4)
  1. ANDROGEL [Suspect]
     Active Substance: TESTOSTERONE
     Indication: Azoospermia
     Route: 065
     Dates: start: 2022
  2. TESTOSTERONE [Suspect]
     Active Substance: TESTOSTERONE
     Route: 065
     Dates: start: 2022
  3. EPOETIN BETA [Suspect]
     Active Substance: ERYTHROPOIETIN
     Route: 065
  4. KENACORT [Suspect]
     Active Substance: TRIAMCINOLONE
     Route: 065
     Dates: start: 202306

REACTIONS (3)
  - Haematocrit increased [Recovered/Resolved]
  - Peripheral ischaemia [Recovered/Resolved with Sequelae]
  - Intentional product misuse [Recovered/Resolved]

NARRATIVE: CASE EVENT DATE: 20231017
